FAERS Safety Report 4362728-1 (Version None)
Quarter: 2004Q2

REPORT INFORMATION
  Report Type: 
  Country: None (occurrence: None)
  Receive Date: 20040518
  Receipt Date: 20040430
  Transmission Date: 20050107
  Serious: Yes (Life-Threatening)
  Sender: FDA-Public Use
  Company Number: WAES 0405DEU00015

PATIENT
  Age: 67 Year
  Sex: Male

DRUGS (8)
  1. HYZAAR [Suspect]
     Indication: HYPERTENSION
     Dosage: 50-12.5 MG/DAILY  PO
     Route: 048
     Dates: start: 20040413, end: 20040423
  2. BUDESONIDE [Concomitant]
  3. FENOTEROL HYDROBROMIDE (+) IPRATROPIUM B [Concomitant]
  4. FUROSEMIDE [Concomitant]
  5. METHYLPREDNISOLONE [Concomitant]
  6. OMEPRAZOLE [Concomitant]
  7. THEOPHYLLINE [Concomitant]
  8. VERAPAMIL [Concomitant]

REACTIONS (1)
  - STATUS ASTHMATICUS [None]
